FAERS Safety Report 19700932 (Version 3)
Quarter: 2023Q1

REPORT INFORMATION
  Report Type: Report from Study
  Country: CN (occurrence: CN)
  Receive Date: 20210813
  Receipt Date: 20230118
  Transmission Date: 20230417
  Serious: Yes (Hospitalization)
  Sender: FDA-Public Use
  Company Number: CN-JNJFOC-20210812568

PATIENT
  Age: 64 Year
  Sex: Female
  Weight: 66.5 kg

DRUGS (10)
  1. AMIVANTAMAB [Suspect]
     Active Substance: AMIVANTAMAB
     Indication: Non-small cell lung cancer metastatic
     Route: 042
     Dates: start: 20210708, end: 20210729
  2. AMLODIPINE BESYLATE [Concomitant]
     Active Substance: AMLODIPINE BESYLATE
     Indication: Hypertension
     Route: 048
     Dates: start: 20160101
  3. MUPIROCIN [Concomitant]
     Active Substance: MUPIROCIN
     Indication: Prophylaxis
     Dosage: NA
     Route: 061
     Dates: start: 20210712, end: 20210801
  4. MUPIROCIN [Concomitant]
     Active Substance: MUPIROCIN
     Indication: Rash
     Route: 061
     Dates: start: 20210802
  5. MINOCYCLINE HYDROCHLORIDE [Concomitant]
     Active Substance: MINOCYCLINE HYDROCHLORIDE
     Indication: Prophylaxis
     Route: 048
     Dates: start: 20210712, end: 20210801
  6. MINOCYCLINE HYDROCHLORIDE [Concomitant]
     Active Substance: MINOCYCLINE HYDROCHLORIDE
     Indication: Rash
     Route: 048
     Dates: start: 20210802, end: 20210827
  7. KANG FU XIN [Concomitant]
     Indication: Stomatitis
     Route: 048
     Dates: start: 20210814
  8. VITAMIN B2 [Concomitant]
     Active Substance: RIBOFLAVIN
     Indication: Stomatitis
     Route: 048
     Dates: start: 20210814, end: 20210912
  9. BOVINE BASIC FIBROBLAST GROWTH FACTOR [Concomitant]
     Indication: Stomatitis
     Route: 065
     Dates: start: 20210814, end: 20210912
  10. CHUAN WANG XIAO YAN JIAO NANG [Concomitant]
     Indication: Stomatitis
     Route: 048
     Dates: start: 20210814, end: 20210912

REACTIONS (1)
  - Troponin I increased [Recovered/Resolved]

NARRATIVE: CASE EVENT DATE: 20210804
